FAERS Safety Report 18037863 (Version 3)
Quarter: 2021Q2

REPORT INFORMATION
  Report Type: Spontaneous
  Country: None (occurrence: US)
  Receive Date: 20200717
  Receipt Date: 20210624
  Transmission Date: 20210717
  Serious: Yes (Other)
  Sender: FDA-Public Use
  Company Number: US-GLAXOSMITHKLINE-US2020134583

PATIENT
  Sex: Male

DRUGS (5)
  1. ZANTAC [Suspect]
     Active Substance: RANITIDINE HYDROCHLORIDE
     Indication: ULCER HAEMORRHAGE
     Dosage: UNK UNK, QD
     Route: 065
     Dates: start: 198708, end: 1998
  2. ZANTAC [Suspect]
     Active Substance: RANITIDINE HYDROCHLORIDE
     Dates: start: 19870615, end: 20040615
  3. RANITIDINE. [Suspect]
     Active Substance: RANITIDINE
     Indication: ULCER HAEMORRHAGE
     Dosage: UNK, QD
     Route: 065
     Dates: start: 1992, end: 1998
  4. ZANTAC [Suspect]
     Active Substance: RANITIDINE HYDROCHLORIDE
     Indication: ULCER HAEMORRHAGE
     Dosage: UNK UNK, QD
     Route: 065
     Dates: start: 198708, end: 1998
  5. RANITIDINE. [Suspect]
     Active Substance: RANITIDINE
     Indication: ULCER HAEMORRHAGE
     Dosage: UNK, QD
     Route: 065
     Dates: start: 1992, end: 1998

REACTIONS (2)
  - Lung neoplasm malignant [Unknown]
  - Renal cancer [Unknown]
